FAERS Safety Report 4360642-9 (Version None)
Quarter: 2004Q2

REPORT INFORMATION
  Report Type: 
  Country: None (occurrence: None)
  Receive Date: 20040519
  Receipt Date: 20040519
  Transmission Date: 20050107
  Serious: Yes (Disabling)
  Sender: FDA-Public Use
  Company Number: None

PATIENT
  Age: 17 Year
  Sex: Male
  Weight: 59 kg

DRUGS (2)
  1. PREDNISONE [Suspect]
     Indication: GRAFT VERSUS HOST DISEASE
     Dates: start: 20021201, end: 20030501
  2. PREDNISONE [Suspect]
     Indication: PROPHYLAXIS
     Dates: start: 20021201, end: 20030501

REACTIONS (2)
  - ASEPTIC NECROSIS BONE [None]
  - CATARACT [None]
